FAERS Safety Report 19944123 (Version 3)
Quarter: 2021Q4

REPORT INFORMATION
  Report Type: Spontaneous
  Country: JP (occurrence: JP)
  Receive Date: 20211011
  Receipt Date: 20211118
  Transmission Date: 20220303
  Serious: Yes (Hospitalization)
  Sender: FDA-Public Use
  Company Number: JP-PFIZER INC-202101296111

PATIENT
  Age: 56 Year
  Sex: Female
  Weight: 45 kg

DRUGS (21)
  1. CLINDAMYCIN HYDROCHLORIDE [Suspect]
     Active Substance: CLINDAMYCIN HYDROCHLORIDE
     Indication: Folliculitis
     Dosage: 150 MG, 3X/DAY
     Route: 048
     Dates: start: 20210810, end: 20210813
  2. REBAMIPIDE [Suspect]
     Active Substance: REBAMIPIDE
     Indication: Folliculitis
     Dosage: 100 MG, 3X/DAY
     Route: 048
     Dates: start: 20210810, end: 20210817
  3. PITAVASTATIN CALCIUM [Concomitant]
     Active Substance: PITAVASTATIN CALCIUM
     Dosage: UNK
  4. AZATHIOPRINE [Concomitant]
     Active Substance: AZATHIOPRINE
     Dosage: UNK
  5. NEXIUM [Concomitant]
     Active Substance: ESOMEPRAZOLE MAGNESIUM
     Dosage: UNK
  6. PREDNISOLONE [Concomitant]
     Active Substance: PREDNISOLONE
     Dosage: UNK
  7. PLAQUENIL [Concomitant]
     Active Substance: HYDROXYCHLOROQUINE SULFATE
     Dosage: UNK
  8. BIOFERMIN [BIFIDOBACTERIUM BIFIDUM] [Concomitant]
     Dosage: UNK
  9. ELDECALCITOL [Concomitant]
     Active Substance: ELDECALCITOL
     Dosage: UNK
  10. DICLOFENAC SODIUM [Concomitant]
     Active Substance: DICLOFENAC SODIUM
     Dosage: UNK
  11. ISODINE [Concomitant]
     Active Substance: POVIDONE-IODINE
     Dosage: UNK
  12. TIMOLOL [Concomitant]
     Active Substance: TIMOLOL
     Dosage: UNK
  13. LATANOPROST NP [Concomitant]
     Dosage: UNK
  14. DIQUAFOSOL TETRASODIUM [Concomitant]
     Active Substance: DIQUAFOSOL TETRASODIUM
     Dosage: UNK
  15. REBAMIPIDE [Concomitant]
     Active Substance: REBAMIPIDE
     Dosage: UNK
  16. MYPILIN [Concomitant]
     Dosage: UNK
  17. PREDONINE [Concomitant]
     Active Substance: PREDNISOLONE
     Dosage: UNK
  18. HERBALS [Concomitant]
     Active Substance: HERBALS
     Dosage: UNK
  19. HERBALS [Concomitant]
     Active Substance: HERBALS
     Dosage: UNK
  20. LIDOCAINE\TRIBENOSIDE [Concomitant]
     Active Substance: LIDOCAINE\TRIBENOSIDE
     Dosage: UNK
  21. HERBALS [Concomitant]
     Active Substance: HERBALS
     Indication: Cystitis
     Dosage: UNK
     Route: 048
     Dates: start: 20210813, end: 20210817

REACTIONS (1)
  - Drug eruption [Recovering/Resolving]

NARRATIVE: CASE EVENT DATE: 20210813
